FAERS Safety Report 5878267-2 (Version None)
Quarter: 2008Q3

REPORT INFORMATION
  Report Type: 
  Country: None (occurrence: None)
  Receive Date: 20080911
  Receipt Date: 20080904
  Transmission Date: 20090109
  Serious: Yes (Death, Other)
  Sender: FDA-Public Use
  Company Number: JP-AVENTIS-200812630JP

PATIENT
  Age: 69 Year
  Sex: Male
  Weight: 39.9 kg

DRUGS (8)
  1. TAXOTERE [Suspect]
     Indication: OROPHARYNGEAL CANCER RECURRENT
     Route: 041
     Dates: start: 20080616, end: 20080616
  2. TAXOTERE [Suspect]
     Route: 041
     Dates: start: 20080730, end: 20080730
  3. FLUOROURACIL [Suspect]
     Indication: OROPHARYNGEAL CANCER RECURRENT
     Route: 041
     Dates: start: 20080616, end: 20080620
  4. FLUOROURACIL [Suspect]
     Route: 041
     Dates: start: 20080730, end: 20080803
  5. BRIPLATIN [Suspect]
     Indication: OROPHARYNGEAL CANCER RECURRENT
     Route: 041
     Dates: start: 20080616, end: 20080616
  6. BRIPLATIN [Suspect]
     Route: 041
     Dates: start: 20080730, end: 20080730
  7. DECADRON [Concomitant]
     Indication: PREMEDICATION
     Dates: start: 20080616, end: 20080616
  8. DECADRON [Concomitant]
     Dates: start: 20080730, end: 20080730

REACTIONS (22)
  - ANOREXIA [None]
  - BACTERIA STOOL IDENTIFIED [None]
  - BLOOD PRESSURE DECREASED [None]
  - BLOOD SODIUM DECREASED [None]
  - BONE MARROW FAILURE [None]
  - CARDIAC ARREST [None]
  - DIARRHOEA [None]
  - DISSEMINATED INTRAVASCULAR COAGULATION [None]
  - DYSPNOEA [None]
  - GASTROINTESTINAL HAEMORRHAGE [None]
  - HYPOGLYCAEMIA [None]
  - INFECTION [None]
  - LIP HAEMORRHAGE [None]
  - LIVER DISORDER [None]
  - PULMONARY OEDEMA [None]
  - PYREXIA [None]
  - RENAL FAILURE [None]
  - RESPIRATORY FAILURE [None]
  - SEPSIS [None]
  - STAPHYLOCOCCAL INFECTION [None]
  - SYNCOPE [None]
  - VOMITING [None]
